FAERS Safety Report 15737051 (Version 5)
Quarter: 2019Q1

REPORT INFORMATION
  Report Type: Report from Study
  Country: None (occurrence: CN)
  Receive Date: 20181218
  Receipt Date: 20190130
  Transmission Date: 20190417
  Serious: Yes (Hospitalization)
  Sender: FDA-Public Use
  Company Number: CN-ABBVIE-18P-035-2585855-00

PATIENT
  Age: 75 Year
  Sex: Female
  Weight: 43 kg

DRUGS (12)
  1. SODIUM BICARBONATE. [Concomitant]
     Active Substance: SODIUM BICARBONATE
     Route: 042
     Dates: start: 20181016, end: 20181027
  2. SODIUM CHLORIDE + DEXTROSE [Concomitant]
     Route: 042
     Dates: start: 20180907, end: 20180919
  3. VENETOCLAX. [Suspect]
     Active Substance: VENETOCLAX
     Route: 048
     Dates: start: 20180908, end: 20180908
  4. SODIUM CHLORIDE + DEXTROSE [Concomitant]
     Route: 042
     Dates: start: 20181017, end: 20181023
  5. SODIUM BICARBONATE. [Concomitant]
     Active Substance: SODIUM BICARBONATE
     Indication: PROPHYLAXIS
     Route: 042
     Dates: start: 20180828, end: 20180930
  6. SODIUM BICARBONATE. [Concomitant]
     Active Substance: SODIUM BICARBONATE
     Route: 042
     Dates: start: 20181027, end: 20181027
  7. VENETOCLAX. [Suspect]
     Active Substance: VENETOCLAX
     Indication: ACUTE MYELOID LEUKAEMIA
     Route: 048
     Dates: start: 20180907, end: 20180907
  8. AZACITIDINE. [Suspect]
     Active Substance: AZACITIDINE
     Indication: ACUTE MYELOID LEUKAEMIA
     Dosage: DAYS 1-7 OF 28 DAY CYCLE
     Route: 058
     Dates: start: 20180907
  9. SODIUM CHLORIDE + DEXTROSE [Concomitant]
     Indication: PROPHYLAXIS
     Route: 042
     Dates: start: 20180907, end: 20180919
  10. VENETOCLAX. [Suspect]
     Active Substance: VENETOCLAX
     Route: 048
     Dates: start: 20180909
  11. SODIUM BICARBONATE. [Concomitant]
     Active Substance: SODIUM BICARBONATE
     Route: 042
     Dates: start: 20180830, end: 20180930
  12. ALLOPURINOL. [Concomitant]
     Active Substance: ALLOPURINOL
     Indication: PROPHYLAXIS
     Route: 048
     Dates: start: 20180828, end: 20180927

REACTIONS (1)
  - Thrombocytopenia [Not Recovered/Not Resolved]

NARRATIVE: CASE EVENT DATE: 20180912
